FAERS Safety Report 5350696-5 (Version None)
Quarter: 2007Q2

REPORT INFORMATION
  Report Type: 
  Country: None (occurrence: None)
  Receive Date: 20070608
  Receipt Date: 20070528
  Transmission Date: 20071010
  Serious: Yes (Hospitalization)
  Sender: FDA-Public Use
  Company Number: JP-ELI_LILLY_AND_COMPANY-JP200705004310

PATIENT
  Age: 71 Year
  Sex: Female
  Weight: 42.5 kg

DRUGS (2)
  1. EVISTA [Suspect]
     Indication: OSTEOPOROSIS POSTMENOPAUSAL
     Dosage: 60 MG, DAILY (1/D)
     Route: 048
     Dates: start: 20061218, end: 20070221
  2. ALFAROL [Concomitant]
     Route: 048

REACTIONS (8)
  - AUTOIMMUNE DISORDER [None]
  - BLOOD DISORDER [None]
  - CONDITION AGGRAVATED [None]
  - MALAISE [None]
  - NEPHROTIC SYNDROME [None]
  - PANCREATITIS [None]
  - RENAL DISORDER [None]
  - SYSTEMIC LUPUS ERYTHEMATOSUS [None]
